FAERS Safety Report 13835024 (Version 1)
Quarter: 2017Q3

REPORT INFORMATION
  Report Type: Spontaneous
  Country: US (occurrence: US)
  Receive Date: 20170804
  Receipt Date: 20170804
  Transmission Date: 20171127
  Serious: Yes (Hospitalization)
  Sender: FDA-Public Use
  Company Number: None

PATIENT
  Age: 71 Year
  Sex: Female
  Weight: 66.3 kg

DRUGS (12)
  1. LIPITOR [Concomitant]
     Active Substance: ATORVASTATIN CALCIUM
  2. DECADRON [Concomitant]
     Active Substance: DEXAMETHASONE
  3. ATIVAN [Concomitant]
     Active Substance: LORAZEPAM
  4. MEDICAL CANNABIS PATIENT CERTIFIED [Concomitant]
  5. HYDROMORPHONE (DILAUDID) [Concomitant]
  6. APIXABAN 5 MG [Suspect]
     Active Substance: APIXABAN
     Indication: PULMONARY EMBOLISM
     Route: 048
     Dates: start: 20170327
  7. ZOFRAN [Concomitant]
     Active Substance: ONDANSETRON HYDROCHLORIDE
  8. CALCIUM CARB-ERGOCALCIFEROL [Concomitant]
  9. CHOLECALCIFEROL (VITAMIN D3) [Concomitant]
  10. METHYLPREDNISOLONE (MEDROL 21 TABLET DOSEPAK) [Concomitant]
  11. LOSARTAN (COZAAR) [Concomitant]
  12. NORVASC [Concomitant]
     Active Substance: AMLODIPINE BESYLATE

REACTIONS (2)
  - Pain [None]
  - Arthralgia [None]

NARRATIVE: CASE EVENT DATE: 20170803
